FAERS Safety Report 15216797 (Version 1)
Quarter: 2018Q3

REPORT INFORMATION
  Report Type: Spontaneous
  Country: DE (occurrence: DE)
  Receive Date: 20180730
  Receipt Date: 20180730
  Transmission Date: 20181010
  Serious: Yes (Hospitalization, Other)
  Sender: FDA-Public Use
  Company Number: DE-IMPAX LABORATORIES, INC-2018-IPXL-02497

PATIENT
  Age: 47 Year
  Sex: Female

DRUGS (3)
  1. BACLOFEN. [Suspect]
     Active Substance: BACLOFEN
     Indication: ALCOHOLISM
     Dosage: UNK
     Route: 065
  2. BACLOFEN. [Suspect]
     Active Substance: BACLOFEN
     Indication: PRODUCT USE IN UNAPPROVED INDICATION
     Dosage: UNK, INCREASING DOSES OVER 1 WEEK
     Route: 065
  3. BACLOFEN. [Suspect]
     Active Substance: BACLOFEN
     Dosage: AT LAST 8 ? 25 MG (2 DAYS BEFORE HER DISCOVERY)
     Route: 065

REACTIONS (15)
  - Rhabdomyolysis [Recovering/Resolving]
  - Delirium [Recovering/Resolving]
  - Prescribed overdose [Unknown]
  - Contusion [Recovering/Resolving]
  - Pyrexia [Recovering/Resolving]
  - Amnesia [Recovering/Resolving]
  - Candida sepsis [Recovering/Resolving]
  - Fall [Unknown]
  - Haematoma [Recovering/Resolving]
  - Stress cardiomyopathy [Recovering/Resolving]
  - Multiple organ dysfunction syndrome [Recovering/Resolving]
  - Device related sepsis [Recovering/Resolving]
  - Dehydration [Recovering/Resolving]
  - Coma [Recovering/Resolving]
  - Product use in unapproved indication [Unknown]
